FAERS Safety Report 11300872 (Version 1)
Quarter: 2015Q3

REPORT INFORMATION
  Report Type: Spontaneous
  Country: US (occurrence: US)
  Receive Date: 20150722
  Receipt Date: 20150722
  Transmission Date: 20151125
  Serious: No
  Sender: FDA-Public Use
  Company Number: US-ELI_LILLY_AND_COMPANY-US201404004582

PATIENT
  Sex: Female

DRUGS (2)
  1. SOMATROPIN [Suspect]
     Active Substance: SOMATROPIN
     Dosage: 0.6 MG, QD
     Route: 065
     Dates: start: 201402
  2. SOMATROPIN [Suspect]
     Active Substance: SOMATROPIN
     Indication: EHLERS-DANLOS SYNDROME
     Dosage: 0.3 MG, QD
     Route: 065
     Dates: start: 201312

REACTIONS (3)
  - Blood growth hormone decreased [Unknown]
  - Drug dose omission [Unknown]
  - Malaise [Unknown]
